FAERS Safety Report 9656990 (Version 1)
Quarter: 2013Q4

REPORT INFORMATION
  Report Type: Spontaneous
  Country: US (occurrence: US)
  Receive Date: 20131030
  Receipt Date: 20131030
  Transmission Date: 20140711
  Serious: No
  Sender: FDA-Public Use
  Company Number: US-PFIZER INC-2013309053

PATIENT
  Age: 70 Year
  Sex: Female

DRUGS (1)
  1. INLYTA [Suspect]
     Indication: THYROID CANCER
     Dosage: 5 MG, 2X/DAY
     Dates: start: 20130726

REACTIONS (3)
  - Disease progression [Unknown]
  - Thyroid cancer [Unknown]
  - Off label use [Unknown]
